FAERS Safety Report 25478847 (Version 2)
Quarter: 2025Q2

REPORT INFORMATION
  Report Type: Spontaneous
  Country: US (occurrence: US)
  Receive Date: 20250625
  Receipt Date: 20250630
  Transmission Date: 20250717
  Serious: No
  Sender: MYLAN
  Company Number: US-MYLANLABS-2025M1051828

PATIENT
  Sex: Male

DRUGS (2)
  1. LYRICA [Suspect]
     Active Substance: PREGABALIN
     Indication: Neuralgia
  2. PREGABALIN [Concomitant]
     Active Substance: PREGABALIN
     Indication: Product used for unknown indication
     Dosage: 75 MILLIGRAM, TID (THREE TIMES A DAY)

REACTIONS (6)
  - Pain in extremity [Unknown]
  - Defaecation urgency [Not Recovered/Not Resolved]
  - Micturition urgency [Not Recovered/Not Resolved]
  - Somnolence [Unknown]
  - Pain [Unknown]
  - Drug ineffective [Unknown]
